FAERS Safety Report 6314797-7 (Version None)
Quarter: 2009Q3

REPORT INFORMATION
  Report Type: 
  Country: None (occurrence: None)
  Receive Date: 20090819
  Receipt Date: 20090814
  Transmission Date: 20100115
  Serious: Yes (Death)
  Sender: FDA-Public Use
  Company Number: US-ROCHE-649384

PATIENT
  Sex: Male

DRUGS (8)
  1. VALGANCICLOVIR HCL [Suspect]
     Route: 048
     Dates: start: 20090707
  2. MYCOPHENOLATE MOFETIL [Suspect]
     Route: 048
     Dates: start: 20090623
  3. PROGRAF [Suspect]
     Route: 048
     Dates: start: 20090629
  4. PREDNISONE [Suspect]
     Route: 048
     Dates: start: 20090625
  5. AMLODIPINE [Concomitant]
     Indication: HYPERTENSION
     Route: 048
     Dates: start: 20090707
  6. AMIODARONE [Concomitant]
     Indication: ARRHYTHMIA
     Route: 048
     Dates: start: 20090707
  7. BUMEX [Concomitant]
     Indication: FLUID RETENTION
     Route: 048
     Dates: start: 20090707
  8. BACTRIM [Concomitant]
     Route: 048
     Dates: start: 20090707

REACTIONS (1)
  - DEATH [None]
